FAERS Safety Report 9895827 (Version 2)
Quarter: 2014Q1

REPORT INFORMATION
  Report Type: Spontaneous
  Country: US (occurrence: US)
  Receive Date: 20140213
  Receipt Date: 20140213
  Transmission Date: 20141002
  Serious: No
  Sender: FDA-Public Use
  Company Number: US-BRISTOL-MYERS SQUIBB COMPANY-17244765

PATIENT
  Age: 73 Year
  Sex: Male
  Weight: 99.77 kg

DRUGS (10)
  1. ORENCIA FOR INJ [Suspect]
     Indication: RHEUMATOID ARTHRITIS
     Route: 058
  2. ADVICOR [Concomitant]
  3. ASPIRIN [Concomitant]
  4. COUMADIN [Concomitant]
  5. DILTIAZEM HCL [Concomitant]
  6. FISH OIL [Concomitant]
  7. LISINOPRIL [Concomitant]
  8. METOPROLOL [Concomitant]
  9. NIASPAN [Concomitant]
  10. PREVACID [Concomitant]

REACTIONS (1)
  - Impaired healing [Unknown]
